FAERS Safety Report 8844273 (Version 1)
Quarter: 2012Q4

REPORT INFORMATION
  Report Type: 
  Country: US (occurrence: US)
  Receive Date: 20121017
  Receipt Date: 20121017
  Transmission Date: 20130627
  Serious: Yes (Hospitalization)
  Sender: FDA-Public Use
  Company Number: US-BAYER-2012-106214

PATIENT
  Age: 22 Year
  Sex: Female

DRUGS (6)
  1. YASMIN [Suspect]
  2. TRAMADOL [Concomitant]
     Indication: PAIN
  3. ADVIL [Concomitant]
  4. ACIPHEX [Concomitant]
  5. TORADOL [Concomitant]
     Indication: HEADACHE
  6. LEVAQUIN [Concomitant]
     Indication: INFECTION

REACTIONS (1)
  - Deep vein thrombosis [None]
